FAERS Safety Report 5771278-7 (Version None)
Quarter: 2008Q2

REPORT INFORMATION
  Report Type: 
  Country: None (occurrence: None)
  Receive Date: 20080613
  Receipt Date: 20080603
  Transmission Date: 20081010
  Serious: Yes (Life-Threatening)
  Sender: FDA-Public Use
  Company Number: US-JNJFOC-20080601568

PATIENT
  Sex: Male
  Weight: 79.38 kg

DRUGS (27)
  1. INFLIXIMAB [Suspect]
  2. INFLIXIMAB [Suspect]
  3. INFLIXIMAB [Suspect]
  4. INFLIXIMAB [Suspect]
  5. INFLIXIMAB [Suspect]
  6. INFLIXIMAB [Suspect]
  7. INFLIXIMAB [Suspect]
  8. INFLIXIMAB [Suspect]
  9. INFLIXIMAB [Suspect]
  10. INFLIXIMAB [Suspect]
  11. INFLIXIMAB [Suspect]
  12. INFLIXIMAB [Suspect]
  13. INFLIXIMAB [Suspect]
  14. INFLIXIMAB [Suspect]
  15. INFLIXIMAB [Suspect]
  16. INFLIXIMAB [Suspect]
  17. INFLIXIMAB [Suspect]
  18. INFLIXIMAB [Suspect]
  19. INFLIXIMAB [Suspect]
  20. INFLIXIMAB [Suspect]
  21. INFLIXIMAB [Suspect]
  22. INFLIXIMAB [Suspect]
  23. INFLIXIMAB [Suspect]
  24. INFLIXIMAB [Suspect]
  25. INFLIXIMAB [Suspect]
     Indication: CROHN'S DISEASE
     Dosage: 4 INFUSIONS PRIOR TO BASELINE (DATES AND DOSES NOT REPORTED)
  26. MERCAPTOPURINE [Suspect]
     Indication: CROHN'S DISEASE
  27. MESALAMINE [Concomitant]
     Indication: CROHN'S DISEASE

REACTIONS (2)
  - PLEURAL EFFUSION [None]
  - PULMONARY TUBERCULOSIS [None]
